FAERS Safety Report 24380397 (Version 2)
Quarter: 2024Q4

REPORT INFORMATION
  Report Type: Spontaneous
  Country: US (occurrence: US)
  Receive Date: 20240930
  Receipt Date: 20241226
  Transmission Date: 20250115
  Serious: No
  Sender: SANOFI AVENTIS
  Company Number: US-SA-2024SA275581

PATIENT
  Sex: Female

DRUGS (20)
  1. KEVZARA [Suspect]
     Active Substance: SARILUMAB
     Indication: Rheumatoid arthritis
     Dosage: 200 MG, QOW
     Route: 058
     Dates: start: 202407
  2. BELSOMRA [Concomitant]
     Active Substance: SUVOREXANT
  3. DULOXETINE [Concomitant]
     Active Substance: DULOXETINE
  4. CELECOXIB [Concomitant]
     Active Substance: CELECOXIB
  5. BUTALBITAL [Concomitant]
     Active Substance: BUTALBITAL
  6. CLOPIDOGREL [Concomitant]
     Active Substance: CLOPIDOGREL BISULFATE
  7. CETIRIZINE [Concomitant]
     Active Substance: CETIRIZINE HYDROCHLORIDE
  8. AMLODIPINE [Concomitant]
     Active Substance: AMLODIPINE BESYLATE
  9. FENOFIBRATE [Concomitant]
     Active Substance: FENOFIBRATE
  10. GABAPENTIN [Concomitant]
     Active Substance: GABAPENTIN
  11. GLIMEPIRIDE [Concomitant]
     Active Substance: GLIMEPIRIDE
  12. HYDROXYZINE [Concomitant]
     Active Substance: HYDROXYZINE HYDROCHLORIDE
  13. LEVOTHYROXINE [Concomitant]
     Active Substance: LEVOTHYROXINE
  14. METOPROLOL FUMARATE [Concomitant]
     Active Substance: METOPROLOL FUMARATE
  15. NITROGLYCERIN [Concomitant]
     Active Substance: NITROGLYCERIN
  16. NORTRIPTYLIN GLENMARK [Concomitant]
  17. PAROXETINE [Concomitant]
     Active Substance: PAROXETINE
  18. PRAVASTATIN [Concomitant]
     Active Substance: PRAVASTATIN
  19. TRAMADOL HYDROCHLORIDE [Concomitant]
     Active Substance: TRAMADOL HYDROCHLORIDE
  20. ZOLPIDEM [Concomitant]
     Active Substance: ZOLPIDEM TARTRATE

REACTIONS (12)
  - COVID-19 [Recovering/Resolving]
  - Dysgeusia [Unknown]
  - Blood glucose increased [Unknown]
  - Cardiac disorder [Unknown]
  - Musculoskeletal discomfort [Unknown]
  - Eating disorder [Unknown]
  - Confusional state [Unknown]
  - Movement disorder [Unknown]
  - Memory impairment [Unknown]
  - Fall [Unknown]
  - Blood cholesterol abnormal [Unknown]
  - Depression [Unknown]
